FAERS Safety Report 6267945-1 (Version None)
Quarter: 2009Q3

REPORT INFORMATION
  Report Type: 
  Country: None (occurrence: None)
  Receive Date: 20090713
  Receipt Date: 20090702
  Transmission Date: 20100115
  Serious: Yes (Hospitalization)
  Sender: FDA-Public Use
  Company Number: 2009AP002683

PATIENT
  Age: 61 Year
  Sex: Male

DRUGS (3)
  1. GEMFIBROZIL [Suspect]
     Indication: BLOOD CHOLESTEROL INCREASED
     Dosage: 600 MG, BID, PO
     Route: 048
     Dates: start: 20060101, end: 20081101
  2. AMLODIPINE BESYLATE [Concomitant]
  3. GILMEPIRIDE [Concomitant]

REACTIONS (13)
  - ACTIVITIES OF DAILY LIVING IMPAIRED [None]
  - BLOOD TEST ABNORMAL [None]
  - DISCOMFORT [None]
  - GAIT DISTURBANCE [None]
  - HYPOKINESIA [None]
  - IMPAIRED WORK ABILITY [None]
  - LIMB DISCOMFORT [None]
  - LIVER DISORDER [None]
  - MALAISE [None]
  - MOVEMENT DISORDER [None]
  - MUSCLE DISORDER [None]
  - PAIN IN EXTREMITY [None]
  - RENAL DISORDER [None]
